FAERS Safety Report 9760435 (Version 1)
Quarter: 2013Q4

REPORT INFORMATION
  Report Type: Spontaneous
  Country: US (occurrence: None)
  Receive Date: 20131212
  Receipt Date: 20131212
  Transmission Date: 20140711
  Serious: Yes (Other)
  Sender: FDA-Public Use
  Company Number: 2129540-2013-0014

PATIENT
  Age: 36 Year
  Sex: Male
  Weight: 90.72 kg

DRUGS (2)
  1. EQUATE EFFERVESCENT ANTACID / PAIN RELIEF TABLETS [Suspect]
     Indication: ANTACID THERAPY
     Dosage: 2 TABLETS ORALLY
     Route: 048
     Dates: start: 20131121
  2. EQUATE EFFERVESCENT ANTACID / PAIN RELIEF TABLETS [Suspect]
     Indication: ABDOMINAL DISCOMFORT
     Dosage: 2 TABLETS ORALLY
     Route: 048
     Dates: start: 20131121

REACTIONS (3)
  - Pruritus [None]
  - Burning sensation [None]
  - Urticaria [None]
